FAERS Safety Report 7421702-9 (Version None)
Quarter: 2011Q2

REPORT INFORMATION
  Report Type: 
  Country: None (occurrence: None)
  Receive Date: 20110418
  Receipt Date: 20110414
  Transmission Date: 20111010
  Serious: Yes (Other)
  Sender: FDA-Public Use
  Company Number: US-PFIZER INC-2011043249

PATIENT
  Sex: Female
  Weight: 78 kg

DRUGS (2)
  1. LOPID [Suspect]
     Indication: BLOOD CHOLESTEROL ABNORMAL
     Dosage: UNK
  2. REBIF [Suspect]
     Indication: MULTIPLE SCLEROSIS
     Dosage: UNK
     Dates: start: 20100419, end: 20110119

REACTIONS (5)
  - ABDOMINAL PAIN UPPER [None]
  - BILIARY DILATATION [None]
  - PANCREATIC ENLARGEMENT [None]
  - HEPATOMEGALY [None]
  - LIVER FUNCTION TEST ABNORMAL [None]
